FAERS Safety Report 9047325 (Version 1)
Quarter: 2013Q1

REPORT INFORMATION
  Report Type: Report from Study
  Country: US (occurrence: US)
  Receive Date: 20130131
  Receipt Date: 20130131
  Transmission Date: 20140127
  Serious: No
  Sender: FDA-Public Use
  Company Number: US-ABBOTT-12P-163-0979945-00

PATIENT
  Age: 53 None
  Sex: Male

DRUGS (17)
  1. HUMIRA [Suspect]
     Indication: CROHN^S DISEASE
     Dosage: LOADING DOSE
     Route: 058
     Dates: start: 20120907, end: 20120907
  2. HUMIRA [Suspect]
     Dosage: LOADING DOSE
     Route: 058
     Dates: start: 20120921, end: 20120921
  3. HUMIRA [Suspect]
  4. LISINOPRIL [Concomitant]
     Indication: BLOOD PRESSURE
     Dosage: 5 MG DAILY
  5. AZATHIOPRINE [Concomitant]
     Indication: PRODUCT USED FOR UNKNOWN INDICATION
     Dosage: 50 MG DAILY
  6. B-12 [Concomitant]
     Indication: PRODUCT USED FOR UNKNOWN INDICATION
     Dosage: 1000 MG 1 IN 2 WKS
     Route: 030
  7. ANDROGEL [Concomitant]
     Indication: HORMONE REPLACEMENT THERAPY
     Dosage: 1.62%, 40.5 MG DAILY
  8. GABAPENTIN [Concomitant]
     Indication: PRODUCT USED FOR UNKNOWN INDICATION
     Dosage: 300 MG, AS REQUIRED
  9. POTASSIUM [Concomitant]
     Indication: PRODUCT USED FOR UNKNOWN INDICATION
     Dosage: 750 MG DAILY
  10. BUDESONIDE [Concomitant]
     Indication: CROHN^S DISEASE
     Dosage: 9 MG DAILY
  11. VITAMIN D [Concomitant]
     Indication: PRODUCT USED FOR UNKNOWN INDICATION
     Dosage: 50000 IU DAILY
  12. DICYCLOMINE [Concomitant]
     Indication: PRODUCT USED FOR UNKNOWN INDICATION
     Dosage: 10 MG DAILY
  13. LIALDA [Concomitant]
     Indication: PRODUCT USED FOR UNKNOWN INDICATION
     Dosage: 1.2 GM DAILY
  14. BENADRYL [Concomitant]
     Indication: PROPHYLAXIS
     Dosage: 25 MG DAILY, PRIOR TO LIALDA
  15. BENADRYL [Concomitant]
     Indication: ADVERSE DRUG REACTION
  16. OMEPRAZOLE [Concomitant]
     Indication: PRODUCT USED FOR UNKNOWN INDICATION
     Dosage: 40 MG DAILY
  17. CREON [Concomitant]
     Indication: DYSPEPSIA
     Dosage: 25 MG DAILY

REACTIONS (3)
  - Pyrexia [Not Recovered/Not Resolved]
  - Pain [Recovered/Resolved]
  - Influenza like illness [Recovered/Resolved]
